FAERS Safety Report 7109952-2 (Version None)
Quarter: 2010Q4

REPORT INFORMATION
  Report Type: 
  Country: None (occurrence: None)
  Receive Date: 20101118
  Receipt Date: 20101007
  Transmission Date: 20110411
  Serious: Yes (Hospitalization, Other)
  Sender: FDA-Public Use
  Company Number: US-BAYER-201010681NA

PATIENT
  Age: 23 Year
  Sex: Female
  Weight: 78 kg

DRUGS (14)
  1. YASMIN [Suspect]
     Indication: CONTRACEPTION
     Route: 048
     Dates: start: 20080101, end: 20081106
  2. UNKNOWN DRUG [Concomitant]
     Indication: ASTHMA
  3. FIORICET [Concomitant]
  4. FENTANYL [Concomitant]
     Dates: start: 20081107
  5. ANTIEMETICS [Concomitant]
  6. TOPAMAX [Concomitant]
     Dates: start: 20090203
  7. MIDRIN [Concomitant]
  8. FIORINAL [Concomitant]
  9. HYDROMORPHONE HCL [Concomitant]
  10. ACETAMINOPHEN [Concomitant]
  11. ELAVIL [Concomitant]
  12. BENTYL [Concomitant]
  13. UNKNOWN DRUG [Concomitant]
     Indication: MIGRAINE
  14. ASPIRIN [Concomitant]
     Route: 048

REACTIONS (9)
  - ABDOMINAL PAIN LOWER [None]
  - COLITIS [None]
  - DIZZINESS [None]
  - HEADACHE [None]
  - INTRACRANIAL VENOUS SINUS THROMBOSIS [None]
  - NAUSEA [None]
  - PHOTOPHOBIA [None]
  - TINNITUS [None]
  - VOMITING [None]
